APPROVED DRUG PRODUCT: FUROSEMIDE
Active Ingredient: FUROSEMIDE
Strength: 80MG
Dosage Form/Route: TABLET;ORAL
Application: A078010 | Product #003 | TE Code: AB
Applicant: IPCA LABORATORIES LTD
Approved: Sep 18, 2006 | RLD: No | RS: No | Type: RX